FAERS Safety Report 12691054 (Version 2)
Quarter: 2016Q3

REPORT INFORMATION
  Report Type: Report from Study
  Country: BR (occurrence: BR)
  Receive Date: 20160826
  Receipt Date: 20160902
  Transmission Date: 20161109
  Serious: Yes (Other)
  Sender: FDA-Public Use
  Company Number: BR-ABBVIE-16K-020-1708538-00

PATIENT
  Age: 28 Year
  Sex: Female
  Weight: 89 kg

DRUGS (5)
  1. OMEPRAZOLE. [Suspect]
     Active Substance: OMEPRAZOLE
     Indication: PROPHYLAXIS
  2. MESALAZINE [Suspect]
     Active Substance: MESALAMINE
     Indication: PROPHYLAXIS
  3. MESALAZINE [Suspect]
     Active Substance: MESALAMINE
     Indication: GASTROINTESTINAL DISORDER
     Route: 048
     Dates: start: 201510
  4. HUMIRA [Suspect]
     Active Substance: ADALIMUMAB
     Indication: CROHN^S DISEASE
     Route: 058
     Dates: start: 20160405
  5. OMEPRAZOLE. [Suspect]
     Active Substance: OMEPRAZOLE
     Indication: GASTRIC DISORDER
     Route: 048
     Dates: start: 20160811

REACTIONS (2)
  - Pancreatitis [Recovering/Resolving]
  - Pancreatic enlargement [Unknown]

NARRATIVE: CASE EVENT DATE: 201605
